FAERS Safety Report 8114830-6 (Version None)
Quarter: 2012Q1

REPORT INFORMATION
  Report Type: 
  Country: None (occurrence: None)
  Receive Date: 20120206
  Receipt Date: 20120127
  Transmission Date: 20120608
  Serious: Yes (Other)
  Sender: FDA-Public Use
  Company Number: DE-VERTEX PHARMACEUTICALS INC.-AE-2011-004629

PATIENT
  Sex: Female

DRUGS (5)
  1. COPEGUS [Concomitant]
     Indication: HEPATITIS C
     Dates: start: 20111111
  2. INTERFERON [Concomitant]
     Indication: HEPATITIS C
     Dates: start: 20111111
  3. INCIVO (TELAPREVIR) [Suspect]
     Indication: HEPATITIS C
     Route: 048
     Dates: start: 20111111
  4. DIOVAN HCT [Concomitant]
  5. BISOPROLOL [Concomitant]

REACTIONS (4)
  - LOSS OF CONSCIOUSNESS [None]
  - VOMITING [None]
  - FOOD AVERSION [None]
  - CIRCULATORY COLLAPSE [None]
